FAERS Safety Report 5819659-7 (Version None)
Quarter: 2008Q3

REPORT INFORMATION
  Report Type: 
  Country: None (occurrence: None)
  Receive Date: 20080723
  Receipt Date: 20080711
  Transmission Date: 20090109
  Serious: Yes (Other)
  Sender: FDA-Public Use
  Company Number: FR-PFIZER INC-2008059408

PATIENT
  Sex: Female

DRUGS (2)
  1. LYRICA [Suspect]
     Dosage: DAILY DOSE:50MG
     Dates: start: 20080101, end: 20080701
  2. OXYCONTIN [Concomitant]

REACTIONS (1)
  - JAUNDICE [None]
